FAERS Safety Report 7481649-9 (Version None)
Quarter: 2011Q2

REPORT INFORMATION
  Report Type: 
  Country: None (occurrence: None)
  Receive Date: 20110516
  Receipt Date: 20110503
  Transmission Date: 20111010
  Serious: Yes (Hospitalization)
  Sender: FDA-Public Use
  Company Number: US-ELI_LILLY_AND_COMPANY-US201105002051

PATIENT
  Age: 53 Year
  Sex: Female

DRUGS (5)
  1. BISACODYL [Concomitant]
     Dosage: 10 MG, QD
     Route: 048
  2. LORAZEPAM [Concomitant]
     Dosage: 1 MG, QD
     Route: 048
  3. MIRTAZAPINE [Concomitant]
     Dosage: 15 MG, UNK
     Route: 048
  4. LORAZEPAM [Concomitant]
     Dosage: 0.5 MG, TID
     Route: 048
  5. ZYPREXA [Suspect]
     Dosage: 7.5 MG, UNK
     Route: 048

REACTIONS (7)
  - NEUROGENIC BLADDER [None]
  - ASTHENIA [None]
  - BACK PAIN [None]
  - HYPOPHAGIA [None]
  - POSTURE ABNORMAL [None]
  - ANURIA [None]
  - HYPOAESTHESIA [None]
